FAERS Safety Report 8334010-9 (Version None)
Quarter: 2012Q2

REPORT INFORMATION
  Report Type: 
  Country: None (occurrence: None)
  Receive Date: 20120503
  Receipt Date: 20120426
  Transmission Date: 20120825
  Serious: Yes (Death, Other)
  Sender: FDA-Public Use
  Company Number: TR-CELGENEUS-161-50794-12032339

PATIENT
  Sex: Male
  Weight: 70 kg

DRUGS (5)
  1. CIPROFLOXACIN [Concomitant]
     Indication: CELLULITIS
     Dosage: 400 MILLIGRAM
     Route: 041
     Dates: start: 20120303, end: 20120313
  2. CIPROFLOXACIN [Concomitant]
     Route: 048
     Dates: start: 20120302, end: 20120305
  3. VIDAZA [Suspect]
     Dosage: 140 MILLIGRAM
     Route: 058
     Dates: start: 20120308, end: 20120309
  4. DUOCID [Concomitant]
     Indication: CELLULITIS
     Dosage: 6 GRAM
     Route: 041
     Dates: start: 20120303, end: 20120308
  5. VENTOLIN [Concomitant]
     Route: 055
     Dates: start: 20120102, end: 20120313

REACTIONS (8)
  - LOWER EXTREMITY MASS [None]
  - GASTRIC PERFORATION [None]
  - GAIT DISTURBANCE [None]
  - CARDIOPULMONARY FAILURE [None]
  - SOFT TISSUE DISORDER [None]
  - SEPSIS [None]
  - MALNUTRITION [None]
  - DELIRIUM [None]
